FAERS Safety Report 6974236-X (Version None)
Quarter: 2010Q3

REPORT INFORMATION
  Report Type: 
  Country: None (occurrence: None)
  Receive Date: 20100909
  Receipt Date: 20100825
  Transmission Date: 20110219
  Serious: Yes (Other)
  Sender: FDA-Public Use
  Company Number: IE-GENENTECH-306110

PATIENT
  Age: 60 Year
  Sex: Male

DRUGS (2)
  1. MABTHERA [Suspect]
     Indication: PRODUCT USED FOR UNKNOWN INDICATION
     Dosage: UNK
     Route: 042
  2. MABTHERA [Suspect]
     Dosage: UNK
     Route: 042
     Dates: start: 20100826

REACTIONS (2)
  - BRADYCARDIA [None]
  - UNRESPONSIVE TO STIMULI [None]
